FAERS Safety Report 22360559 (Version 1)
Quarter: 2023Q2

REPORT INFORMATION
  Report Type: Spontaneous
  Country: US (occurrence: US)
  Receive Date: 20230524
  Receipt Date: 20230524
  Transmission Date: 20230722
  Serious: Yes (Other)
  Sender: FDA-Public Use
  Company Number: US-REGENERON PHARMACEUTICALS, INC.-2023-068112

PATIENT
  Sex: Female

DRUGS (3)
  1. PRALUENT [Suspect]
     Active Substance: ALIROCUMAB
     Indication: Hypercholesterolaemia
     Dosage: UNK UNK, Q2W
     Route: 065
     Dates: start: 2022, end: 2023
  2. PRALUENT [Suspect]
     Active Substance: ALIROCUMAB
     Dosage: 75 MG, MONTHLY
     Route: 058
     Dates: start: 2023
  3. VITAMIN D NOS [Concomitant]
     Active Substance: VITAMIN D NOS
     Indication: Product used for unknown indication
     Dosage: 5000 MG
     Route: 065

REACTIONS (4)
  - Choking [Recovered/Resolved]
  - Dry throat [Recovered/Resolved]
  - Dry mouth [Recovered/Resolved]
  - Arthralgia [Unknown]
